FAERS Safety Report 26069932 (Version 1)
Quarter: 2025Q4

REPORT INFORMATION
  Report Type: Spontaneous
  Country: US (occurrence: US)
  Receive Date: 20251120
  Receipt Date: 20251120
  Transmission Date: 20260117
  Serious: No
  Sender: CATALYST PHARMA
  Company Number: US-CATALYST PHARMACEUTICALS-US-CATA-25-01165

PATIENT
  Sex: Male
  Weight: 37.188 kg

DRUGS (11)
  1. AGAMREE [Suspect]
     Active Substance: VAMOROLONE
     Indication: Duchenne muscular dystrophy
     Dosage: 3.5 ML DAILY
     Route: 048
     Dates: start: 20240801
  2. AGAMREE [Suspect]
     Active Substance: VAMOROLONE
     Dosage: 5 ML DAILY
     Route: 048
     Dates: start: 20250813, end: 2025
  3. ADDERALL XR [Concomitant]
     Active Substance: AMPHETAMINE ASPARTATE\AMPHETAMINE SULFATE\DEXTROAMPHETAMINE SACCHARATE\DEXTROAMPHETAMINE SULFATE
     Indication: Attention deficit hyperactivity disorder
     Dosage: 20 MG ON MONDAY-FRIDAY
     Route: 048
  4. CALCIUM [Concomitant]
     Active Substance: CALCIUM
     Indication: Bone disorder
     Dosage: 1500 MG (600 CA) DAILY
     Route: 048
  5. CALCIUM [Concomitant]
     Active Substance: CALCIUM
     Indication: Prophylaxis
  6. ENALAPRIL [Concomitant]
     Active Substance: ENALAPRIL
     Indication: Cardiovascular event prophylaxis
     Dosage: 5 MG DAILY
     Route: 048
  7. EXONDYS 51 [Concomitant]
     Active Substance: ETEPLIRSEN
     Indication: Duchenne muscular dystrophy
     Dosage: WEEKLY
     Route: 042
  8. METOPROLOL TARTRATE [Concomitant]
     Active Substance: METOPROLOL TARTRATE
     Indication: Cardiovascular event prophylaxis
     Dosage: 12.5 MG TWICE DAILY
     Route: 048
  9. VITAMINS [Concomitant]
     Active Substance: VITAMINS
     Indication: Hypovitaminosis
     Dosage: 1 TABLET DAILY
     Route: 048
  10. SERTRALINE HYDROCHLORIDE [Concomitant]
     Active Substance: SERTRALINE HYDROCHLORIDE
     Indication: Anxiety
     Dosage: 150 MG DAILY
     Route: 048
  11. VITAMIN D3 [Concomitant]
     Active Substance: CHOLECALCIFEROL
     Indication: Hypovitaminosis
     Dosage: 5000 IU (125 MCG) DAILY
     Route: 048

REACTIONS (5)
  - Mobility decreased [Not Recovered/Not Resolved]
  - Asthenia [Not Recovered/Not Resolved]
  - Weight increased [Not Recovered/Not Resolved]
  - Behaviour disorder [Not Recovered/Not Resolved]
  - Irritability [Not Recovered/Not Resolved]

NARRATIVE: CASE EVENT DATE: 20240101
